FAERS Safety Report 9236416 (Version 1)
Quarter: 2013Q2

REPORT INFORMATION
  Report Type: Spontaneous
  Country: CO (occurrence: CO)
  Receive Date: 20130417
  Receipt Date: 20130417
  Transmission Date: 20140414
  Serious: Yes (Hospitalization)
  Sender: FDA-Public Use
  Company Number: PHHY2013CO036282

PATIENT
  Age: 51 Year
  Sex: Female

DRUGS (1)
  1. CEFTRIAXONE [Suspect]
     Indication: URINARY TRACT INFECTION
     Dosage: 2 G, UNK
     Route: 042

REACTIONS (8)
  - Pulmonary embolism [Unknown]
  - Eye disorder [Unknown]
  - Toxic epidermal necrolysis [Recovered/Resolved]
  - Erythema [Recovered/Resolved]
  - Rash [Recovered/Resolved]
  - Skin lesion [Recovered/Resolved]
  - Dermatitis exfoliative [Recovered/Resolved]
  - Bacteraemia [Recovering/Resolving]
